FAERS Safety Report 5420832-0 (Version None)
Quarter: 2007Q3

REPORT INFORMATION
  Report Type: 
  Country: None (occurrence: None)
  Receive Date: 20070821
  Receipt Date: 20070807
  Transmission Date: 20080115
  Serious: Yes (Death, Hospitalization, Disabling)
  Sender: FDA-Public Use
  Company Number: FR-ROCHE-510687

PATIENT
  Age: 41 Year
  Sex: Male

DRUGS (2)
  1. PEGASYS [Suspect]
     Route: 058
     Dates: start: 20060611
  2. COPEGUS [Suspect]
     Route: 048
     Dates: start: 20070611

REACTIONS (1)
  - CARDIOMYOPATHY [None]
